FAERS Safety Report 23870645 (Version 2)
Quarter: 2024Q2

REPORT INFORMATION
  Report Type: Report from Study
  Country: BR (occurrence: BR)
  Receive Date: 20240518
  Receipt Date: 20240524
  Transmission Date: 20240716
  Serious: Yes (Other)
  Sender: FDA-Public Use
  Company Number: BR-UCBSA-2024024500

PATIENT
  Sex: Female

DRUGS (8)
  1. CERTOLIZUMAB PEGOL [Suspect]
     Active Substance: CERTOLIZUMAB PEGOL
     Indication: Crohn^s disease
     Dosage: UNK , EV 2 WEEKS(QOW)
     Route: 058
     Dates: start: 202007
  2. CERTOLIZUMAB PEGOL [Suspect]
     Active Substance: CERTOLIZUMAB PEGOL
     Dosage: 400 MILLIGRAM, MONTHLY (QM) (2 SYRINGES EVERY 4 WEEKS)
     Route: 058
  3. OSSOVIT [CALCIUM CITRATE;COLECALCIFEROL;MAGNESIUM;ZINC] [Concomitant]
     Indication: Arthritis
     Dosage: CALCIUM 600 MG + 400 IU 1 TABLET A DAY
  4. ADDERALL [Concomitant]
     Active Substance: AMPHETAMINE ASPARTATE\AMPHETAMINE SULFATE\DEXTROAMPHETAMINE SACCHARATE\DEXTROAMPHETAMINE SULFATE
     Indication: Product used for unknown indication
     Dosage: 7000 INTERNATIONAL UNIT, 1 TABLET WEEKLY (QW)
  5. ALENDRONATE SODIUM [Concomitant]
     Active Substance: ALENDRONATE SODIUM
     Indication: Bone disorder
     Dosage: 70 MILLIGRAM, WEEKLY (QW), HAS BEEN TAKING FOR 10 YEARS
  6. PROPRANOLOL HYDROCHLORIDE [Concomitant]
     Active Substance: PROPRANOLOL HYDROCHLORIDE
     Indication: Cardiac disorder
     Dosage: 10 MILLIGRAM, ONCE DAILY (QD)
  7. PROPRANOLOL HYDROCHLORIDE [Concomitant]
     Active Substance: PROPRANOLOL HYDROCHLORIDE
     Dosage: 10 MILLIGRAM, 2X/DAY (BID)
  8. ATENOLOL [Concomitant]
     Active Substance: ATENOLOL
     Indication: Product used for unknown indication
     Dosage: UNK

REACTIONS (6)
  - Cataract operation [Not Recovered/Not Resolved]
  - Cataract [Unknown]
  - Arrhythmia [Unknown]
  - Knee arthroplasty [Unknown]
  - Weight decreased [Unknown]
  - Intentional dose omission [Unknown]

NARRATIVE: CASE EVENT DATE: 20220101
